FAERS Safety Report 12443775 (Version 2)
Quarter: 2016Q2

REPORT INFORMATION
  Report Type: Spontaneous
  Country: JP (occurrence: JP)
  Receive Date: 20160607
  Receipt Date: 20160615
  Transmission Date: 20160815
  Serious: Yes (Life-Threatening, Other)
  Sender: FDA-Public Use
  Company Number: JP-SA-2016SA105867

PATIENT
  Age: 80 Year
  Sex: Male

DRUGS (11)
  1. DOBUTAMINE HYDROCHLORIDE. [Concomitant]
     Active Substance: DOBUTAMINE HYDROCHLORIDE
  2. FUROSEMIDE. [Concomitant]
     Active Substance: FUROSEMIDE
  3. SAMSCA [Suspect]
     Active Substance: TOLVAPTAN
     Indication: CARDIAC FAILURE CONGESTIVE
     Route: 048
  4. PLAVIX [Suspect]
     Active Substance: CLOPIDOGREL BISULFATE
     Route: 048
  5. SAMSCA [Suspect]
     Active Substance: TOLVAPTAN
     Indication: CARDIAC FAILURE CONGESTIVE
     Route: 048
     Dates: start: 20160129, end: 20160214
  6. SAMSCA [Suspect]
     Active Substance: TOLVAPTAN
     Indication: CARDIAC FAILURE CONGESTIVE
     Route: 048
     Dates: start: 20160120, end: 20160128
  7. MEROPENEM. [Concomitant]
     Active Substance: MEROPENEM
  8. FEBURIC [Suspect]
     Active Substance: FEBUXOSTAT
     Route: 048
  9. MAINTATE [Suspect]
     Active Substance: BISOPROLOL FUMARATE
     Route: 048
  10. HANP [Suspect]
     Active Substance: CARPERITIDE
     Dosage: DOSE + FREQUENCY:0.025 GAMMA/HR
     Route: 041
     Dates: end: 20160209
  11. ELIQUIS [Suspect]
     Active Substance: APIXABAN
     Route: 048

REACTIONS (2)
  - Pneumonia [Unknown]
  - Hypernatraemia [Recovered/Resolved]

NARRATIVE: CASE EVENT DATE: 20160216
